FAERS Safety Report 7098156-8 (Version None)
Quarter: 2010Q4

REPORT INFORMATION
  Report Type: 
  Country: None (occurrence: None)
  Receive Date: 20101112
  Receipt Date: 20101102
  Transmission Date: 20110411
  Serious: Yes (Hospitalization)
  Sender: FDA-Public Use
  Company Number: GB-NOVOPROD-317182

PATIENT
  Sex: Female

DRUGS (1)
  1. INSULATARDA? PENFILLA? HM(GE) 3 ML [Suspect]
     Indication: PRODUCT USED FOR UNKNOWN INDICATION
     Dosage: 90 IU, QD (70+20)

REACTIONS (5)
  - ABDOMINAL PAIN UPPER [None]
  - BLOOD GLUCOSE INCREASED [None]
  - DEVICE FAILURE [None]
  - ESCHERICHIA INFECTION [None]
  - WRONG TECHNIQUE IN DRUG USAGE PROCESS [None]
